FAERS Safety Report 4401381-5 (Version None)
Quarter: 2004Q3

REPORT INFORMATION
  Report Type: 
  Country: None (occurrence: None)
  Receive Date: 20040907
  Receipt Date: 20040405
  Transmission Date: 20050211
  Serious: No
  Sender: FDA-Public Use
  Company Number: US-BRISTOL-MYERS SQUIBB COMPANY-12551412

PATIENT
  Age: 59 Year
  Sex: Female
  Weight: 104 kg

DRUGS (10)
  1. COUMADIN [Suspect]
     Indication: THROMBOSIS
     Dosage: ON RX FOR ^OVER A YEAR^; 7.5MG X 2 DAYS/WEEK + 6MG X 3 DAYS PER WEEK.
     Route: 048
  2. VITAMIN [Concomitant]
     Indication: ANXIETY
     Dosage: ^THEREMS M-VITAMIN- CONTAINS 35% OF VITAMIN K
  3. BUSPAR [Concomitant]
     Dosage: 2 TABS, THREE TIMES A DAY FOR DAILY TOTAL OF 60MG.
     Route: 048
  4. KLONOPIN [Concomitant]
  5. LEXAPRO [Concomitant]
  6. SYNTHROID [Concomitant]
  7. BACTRIM [Concomitant]
     Dosage: ONCE DAILY
  8. PRINIVIL [Concomitant]
     Dosage: ^CURRENTLY DISCONTINUED^
  9. ATENOLOL [Concomitant]
     Dosage: ^CURRENTLY DISCONTINUED^
  10. SPIRONOLACTONE [Concomitant]
     Dosage: ^CURRENTLY DISCONTINUED^

REACTIONS (3)
  - DRUG INEFFECTIVE [None]
  - INTERNATIONAL NORMALISED RATIO DECREASED [None]
  - INTERNATIONAL NORMALISED RATIO INCREASED [None]
